FAERS Safety Report 9462148 (Version 4)
Quarter: 2014Q2

REPORT INFORMATION
  Report Type: Spontaneous
  Country: US (occurrence: None)
  Receive Date: 20130813
  Receipt Date: 20140501
  Transmission Date: 20141212
  Serious: Yes (Life-Threatening, Hospitalization, Other)
  Sender: FDA-Public Use
  Company Number: ADR-2013-01352

PATIENT
  Age: 11 Year
  Sex: Male

DRUGS (1)
  1. BACLOFEN [Suspect]
     Indication: MUSCLE SPASTICITY
     Dosage: 12797MCG/DAY

REACTIONS (7)
  - No therapeutic response [None]
  - Arachnoiditis [None]
  - Device malfunction [None]
  - Drug withdrawal convulsions [None]
  - Product quality issue [None]
  - Multi-organ failure [None]
  - Drug withdrawal syndrome [None]
